FAERS Safety Report 9505506 (Version 1)
Quarter: 2013Q1

REPORT INFORMATION
  Report Type: Spontaneous
  Country: US (occurrence: None)
  Receive Date: 20130220
  Receipt Date: 20130220
  Transmission Date: 20140127
  Serious: No
  Sender: FDA-Public Use
  Company Number: 1000040858

PATIENT
  Age: 42 Year
  Sex: Female

DRUGS (3)
  1. VIIBYRD (VILAZODONE HYDROCHLORIDE) [Suspect]
     Indication: DEPRESSION
     Dosage: 10MG (10 MG, 1 IN 1 D), ORAL
     Route: 048
     Dates: start: 20121130, end: 20121202
  2. RITALIN (METHYLPHENIDATE HYDROCHLORIDE) (METHYLPHENIDATE HYDROCHLORIDE) [Concomitant]
  3. XANAX (ALPRAZOLAM) [Concomitant]

REACTIONS (5)
  - Diarrhoea [None]
  - Nausea [None]
  - Disturbance in attention [None]
  - Anxiety [None]
  - Psychomotor hyperactivity [None]
